FAERS Safety Report 6122660-X (Version None)
Quarter: 2009Q1

REPORT INFORMATION
  Report Type: 
  Country: None (occurrence: None)
  Receive Date: 20090318
  Receipt Date: 20090310
  Transmission Date: 20090719
  Serious: Yes (Hospitalization)
  Sender: FDA-Public Use
  Company Number: PHHY2009GB08971

PATIENT
  Sex: Female
  Weight: 82 kg

DRUGS (6)
  1. DICLOFENAC [Suspect]
     Indication: ANALGESIA
     Dosage: 50 MG, TID
     Route: 048
     Dates: start: 20090225, end: 20090227
  2. RIVAROXABAN [Suspect]
     Indication: THROMBOSIS PROPHYLAXIS
     Dosage: 10 MG, QD
     Route: 048
     Dates: start: 20090224, end: 20090227
  3. BENDROFLUMETHIAZIDE [Concomitant]
  4. ACETAMINOPHEN W/ CODEINE [Concomitant]
  5. DOXAZOSIN MESYLATE [Concomitant]
  6. FELODIPINE [Concomitant]

REACTIONS (1)
  - WOUND HAEMORRHAGE [None]
